FAERS Safety Report 6997999-6 (Version None)
Quarter: 2010Q3

REPORT INFORMATION
  Report Type: 
  Country: None (occurrence: None)
  Receive Date: 20100920
  Receipt Date: 20070522
  Transmission Date: 20110219
  Serious: Yes (Other)
  Sender: FDA-Public Use
  Company Number: US-ASTRAZENECA-2006UW24099

PATIENT
  Age: 15046 Day
  Sex: Male
  Weight: 105.2 kg

DRUGS (26)
  1. SEROQUEL [Suspect]
     Indication: SCHIZOPHRENIA
     Route: 048
     Dates: start: 20031028
  2. SEROQUEL [Suspect]
     Indication: BIPOLAR DISORDER
     Route: 048
     Dates: start: 20031028
  3. SEROQUEL [Suspect]
     Indication: DEPRESSION
     Route: 048
     Dates: start: 20031028
  4. SEROQUEL [Suspect]
     Indication: SLEEP DISORDER
     Route: 048
     Dates: start: 20031028
  5. SEROQUEL [Suspect]
     Indication: PSYCHOTIC DISORDER
     Route: 048
     Dates: start: 20031028
  6. SEROQUEL [Suspect]
     Indication: AFFECTIVE DISORDER
     Route: 048
     Dates: start: 20031028
  7. ZYPREXA [Suspect]
     Indication: PSYCHOTIC DISORDER
     Dosage: 2.5 MG - 15 MG
     Dates: start: 19990512
  8. GEODON [Concomitant]
  9. HALDOL [Concomitant]
  10. DEPAKOTE [Concomitant]
     Dates: start: 20060623
  11. RISPERDAL [Concomitant]
  12. WELLBUTRIN SR [Concomitant]
     Indication: DEPRESSION
     Dosage: 150 MG - 400 MG
     Dates: start: 19990512
  13. WELLBUTRIN SR [Concomitant]
     Indication: PSYCHOTIC DISORDER
     Dosage: 150 MG - 400 MG
     Dates: start: 19990512
  14. XANAX XR [Concomitant]
     Indication: ANXIETY
     Dosage: 0.5 MG - 1 MG
     Dates: start: 20030801
  15. TRILEPTAL [Concomitant]
     Indication: AFFECTIVE DISORDER
     Dosage: 300 MG - 600 MG
     Dates: start: 20030820
  16. KLONOPIN WAFERS [Concomitant]
     Indication: ANXIETY
     Dates: start: 20031028
  17. STRATTERA [Concomitant]
     Route: 048
     Dates: start: 20031028
  18. AMARYL [Concomitant]
     Dates: start: 20031105
  19. TRAZODONE HCL [Concomitant]
     Dates: start: 20041222
  20. AVANDIA [Concomitant]
     Route: 048
     Dates: start: 20040728
  21. LISINOPRIL [Concomitant]
     Route: 048
     Dates: start: 20040728
  22. TRICOR [Concomitant]
     Dosage: 54 MG - 160 MG
     Route: 048
     Dates: start: 20040728
  23. GLYBURIDE AND METFORMIN HYDROCHLORIDE [Concomitant]
     Dosage: 2.5/500 MG TWO TIMES A DAY
     Dates: start: 20060623
  24. METOPROLOL [Concomitant]
     Dates: start: 20060623
  25. LANTUS [Concomitant]
     Dosage: 100 UNIT - 125 UNIT
     Route: 058
     Dates: start: 20050726
  26. ACTOS [Concomitant]
     Dates: start: 20070205

REACTIONS (3)
  - DIABETES MELLITUS [None]
  - DIABETES MELLITUS INADEQUATE CONTROL [None]
  - HYPERGLYCAEMIA [None]
